FAERS Safety Report 5277226-0 (Version None)
Quarter: 2007Q1

REPORT INFORMATION
  Report Type: 
  Country: None (occurrence: None)
  Receive Date: 20070327
  Receipt Date: 20070319
  Transmission Date: 20070707
  Serious: Yes (Hospitalization)
  Sender: FDA-Public Use
  Company Number: US-BRISTOL-MYERS SQUIBB COMPANY-12827309

PATIENT
  Age: 67 Year
  Sex: Female

DRUGS (4)
  1. CETUXIMAB [Suspect]
     Indication: COLORECTAL CANCER METASTATIC
     Dosage: FIRST CETUXIMAB INFUSION 10-NOV-04. ACTION TAKEN: TEMPORARY STOP.
     Route: 042
     Dates: start: 20050110
  2. OXALIPLATIN [Suspect]
     Indication: COLORECTAL CANCER METASTATIC
     Dosage: FIRST OXALIPLATIN INFUSION 20-DEC-2004. ACTION TAKEN: TEMPORARY STOP.
     Route: 042
     Dates: start: 20050110
  3. FLUOROURACIL [Suspect]
     Indication: COLORECTAL CANCER METASTATIC
     Dosage: 1ST INFUSION 04-OCT-04. LOADING DOSE 400 MG/M2 IV BOLUS DAY 1 (EVERY 2 WKS). ACTION: TEMPORARY STOP
     Route: 042
     Dates: start: 20050110
  4. LEUCOVORIN CALCIUM [Suspect]
     Indication: COLORECTAL CANCER METASTATIC
     Dosage: FIRST INFUSION ADMINISTERED ON 04-OCT-04. ACTION TAKEN : TEMPORARY STOP.
     Route: 042
     Dates: start: 20050110

REACTIONS (3)
  - CATHETER BACTERAEMIA [None]
  - CATHETER SITE CELLULITIS [None]
  - SKIN REACTION [None]
